FAERS Safety Report 4991257-7 (Version None)
Quarter: 2006Q2

REPORT INFORMATION
  Report Type: 
  Country: None (occurrence: None)
  Receive Date: 20060428
  Receipt Date: 20060418
  Transmission Date: 20061013
  Serious: Yes (Death)
  Sender: FDA-Public Use
  Company Number: 2006S1002803

PATIENT
  Age: 73 Year
  Sex: Male
  Weight: 72.5755 kg

DRUGS (5)
  1. FENTANYL TRANSDERMAL SYSTEM [Suspect]
     Indication: MUSCULOSKELETAL CHEST PAIN
     Dosage: 75 UG/HR; X1; TRANS
     Dates: start: 20060114, end: 20060115
  2. FENTANYL TRANSDERMAL SYSTEM [Suspect]
     Indication: PROCEDURAL PAIN
     Dosage: 75 UG/HR; X1; TRANS
     Dates: start: 20060114, end: 20060115
  3. ANTIHYPERTENSIVES [Concomitant]
  4. ANTI-DIABETICS [Concomitant]
  5. CARDIAC THERAPY [Concomitant]

REACTIONS (4)
  - DRUG INEFFECTIVE [None]
  - INADEQUATE ANALGESIA [None]
  - LOSS OF CONSCIOUSNESS [None]
  - RESPIRATORY ARREST [None]
